FAERS Safety Report 7675377-4 (Version None)
Quarter: 2011Q3

REPORT INFORMATION
  Report Type: 
  Country: None (occurrence: None)
  Receive Date: 20110810
  Receipt Date: 20110728
  Transmission Date: 20111222
  Serious: Yes (Hospitalization)
  Sender: FDA-Public Use
  Company Number: AT-GLAXOSMITHKLINE-B0738025A

PATIENT
  Sex: Male
  Weight: 66 kg

DRUGS (4)
  1. LERCANIDIPINE [Concomitant]
     Indication: HYPERTENSION
     Dosage: 10MG PER DAY
     Route: 048
  2. CARVEDILOL [Concomitant]
     Indication: HYPERTENSION
     Dosage: 12.5MG TWICE PER DAY
     Route: 048
  3. LISINOPRIL [Concomitant]
     Indication: HYPERTENSION
     Dosage: 20MG PER DAY
     Route: 048
  4. OFATUMUMAB [Suspect]
     Indication: MALIGNANT MELANOMA
     Dosage: 1000MG PER DAY
     Route: 065

REACTIONS (1)
  - HYPERTENSION [None]
